FAERS Safety Report 19474411 (Version 4)
Quarter: 2021Q3

REPORT INFORMATION
  Report Type: Spontaneous
  Country: US (occurrence: US)
  Receive Date: 20210630
  Receipt Date: 20210929
  Transmission Date: 20211014
  Serious: Yes (Hospitalization)
  Sender: FDA-Public Use
  Company Number: US-GLAXOSMITHKLINE-US2021AMR136955

PATIENT
  Sex: Female

DRUGS (5)
  1. FLOLAN DILUENT PH 12 [Suspect]
     Active Substance: GLYCINE\MANNITOL\SODIUM CHLORIDE
     Indication: VEHICLE SOLUTION USE
     Dosage: UNK
     Dates: start: 20161230
  2. FLOLAN [Suspect]
     Active Substance: EPOPROSTENOL SODIUM
     Indication: PULMONARY ARTERIAL HYPERTENSION
     Dosage: 37.97 NG/KG/MIN
     Dates: start: 20060413
  3. FLOLAN [Suspect]
     Active Substance: EPOPROSTENOL SODIUM
     Indication: PULMONARY ARTERIAL HYPERTENSION
     Dosage: 37.97 NG/KG/MIN
     Dates: start: 20060413
  4. BOSENTAN. [Suspect]
     Active Substance: BOSENTAN
     Indication: PRODUCT USED FOR UNKNOWN INDICATION
     Dosage: UNK , QD (ONCE DAILY)
     Dates: start: 202105
  5. FLOLAN DILUENT PH 12 [Suspect]
     Active Substance: GLYCINE\MANNITOL\SODIUM CHLORIDE
     Dosage: UNK
     Dates: start: 20161230

REACTIONS (5)
  - Head discomfort [Unknown]
  - Dyspnoea [Unknown]
  - Hospitalisation [Unknown]
  - Oropharyngeal discomfort [Unknown]
  - Extra dose administered [Unknown]
